FAERS Safety Report 20845844 (Version 1)
Quarter: 2022Q2

REPORT INFORMATION
  Report Type: Spontaneous
  Country: US (occurrence: US)
  Receive Date: 20220518
  Receipt Date: 20220518
  Transmission Date: 20220721
  Serious: No
  Sender: FDA-Public Use
  Company Number: US-INCYTE CORPORATION-2022IN004659

PATIENT

DRUGS (1)
  1. JAKAFI [Suspect]
     Active Substance: RUXOLITINIB
     Indication: Polycythaemia vera
     Dosage: 15 MILLIGRAM, BID
     Route: 048
     Dates: start: 202112

REACTIONS (5)
  - Pain [Unknown]
  - Diplopia [Unknown]
  - Eye pain [Unknown]
  - Headache [Unknown]
  - Dizziness [Unknown]
